FAERS Safety Report 7991702-9 (Version None)
Quarter: 2011Q4

REPORT INFORMATION
  Report Type: 
  Country: None (occurrence: None)
  Receive Date: 20111219
  Receipt Date: 20111214
  Transmission Date: 20120403
  Serious: Yes (Death, Hospitalization)
  Sender: FDA-Public Use
  Company Number: PHHY2011MX109176

PATIENT
  Age: 58 Year
  Sex: Male

DRUGS (1)
  1. RASILEZ [Suspect]
     Indication: HYPERTENSION
     Dosage: 2 DF, DAILY
     Dates: start: 20111001, end: 20111208

REACTIONS (9)
  - RENAL FAILURE CHRONIC [None]
  - DIABETES MELLITUS [None]
  - PILOERECTION [None]
  - PALLOR [None]
  - HYPERTENSION [None]
  - URINARY TRACT INFECTION [None]
  - SEPTIC SHOCK [None]
  - MOVEMENT DISORDER [None]
  - CARDIAC FAILURE CONGESTIVE [None]
